FAERS Safety Report 7507248-8 (Version None)
Quarter: 2011Q2

REPORT INFORMATION
  Report Type: 
  Country: None (occurrence: None)
  Receive Date: 20110526
  Receipt Date: 20110513
  Transmission Date: 20111010
  Serious: Yes (Other)
  Sender: FDA-Public Use
  Company Number: PHHY2011US15769

PATIENT
  Sex: Female

DRUGS (2)
  1. GLEEVEC [Suspect]
     Indication: MALIGNANT SOFT TISSUE NEOPLASM
     Dosage: 400 MG, DAILY
     Route: 048
     Dates: start: 20101210
  2. GLEEVEC [Suspect]
     Indication: CHRONIC MYELOID LEUKAEMIA
     Dosage: 600 MG, DAILY
     Route: 048
     Dates: start: 20101201

REACTIONS (15)
  - DRY SKIN [None]
  - CONTUSION [None]
  - MASS [None]
  - SKIN INJURY [None]
  - SKIN HAEMORRHAGE [None]
  - EYELID OEDEMA [None]
  - PRURITUS [None]
  - PAIN IN EXTREMITY [None]
  - ACTIVITIES OF DAILY LIVING IMPAIRED [None]
  - ASTHENOPIA [None]
  - HAIR TEXTURE ABNORMAL [None]
  - EYE SWELLING [None]
  - FATIGUE [None]
  - SKIN EXFOLIATION [None]
  - ERYTHEMA OF EYELID [None]
